FAERS Safety Report 6604610-2 (Version None)
Quarter: 2010Q1

REPORT INFORMATION
  Report Type: 
  Country: None (occurrence: None)
  Receive Date: 20100226
  Receipt Date: 20091223
  Transmission Date: 20100710
  Serious: No
  Sender: FDA-Public Use
  Company Number: A0836712A

PATIENT
  Age: 52 Year
  Sex: Male

DRUGS (2)
  1. LAMOTRIGINE [Suspect]
     Dosage: 25MG PER DAY
     Route: 048
     Dates: start: 20091001
  2. KLONOPIN [Concomitant]

REACTIONS (3)
  - ALOPECIA [None]
  - RASH [None]
  - URTICARIA [None]
